FAERS Safety Report 4940489-2 (Version None)
Quarter: 2006Q1

REPORT INFORMATION
  Report Type: 
  Country: None (occurrence: None)
  Receive Date: 20060131
  Receipt Date: 20051004
  Transmission Date: 20060701
  Serious: No
  Sender: FDA-Public Use
  Company Number: 200517112US

PATIENT
  Sex: Male

DRUGS (3)
  1. KETEK [Suspect]
     Indication: INFECTION
     Dosage: 400 MG PO
     Route: 048
     Dates: start: 20050927
  2. ALPAZOLAM (XANAX) [Concomitant]
  3. TEMAZEPAM (RESTORIL) [Concomitant]

REACTIONS (2)
  - DRUG INEFFECTIVE [None]
  - NIGHTMARE [None]
